FAERS Safety Report 10075742 (Version 1)
Quarter: 2014Q1

REPORT INFORMATION
  Report Type: Spontaneous
  Country: GB (occurrence: None)
  Receive Date: 20140319
  Receipt Date: 20140319
  Transmission Date: 20141002
  Serious: Yes (Disabling)
  Sender: FDA-Public Use
  Company Number: 224857

PATIENT
  Age: 28 Year
  Sex: Male

DRUGS (3)
  1. DAIVOBET [Suspect]
     Indication: PSORIASIS
     Dosage: 1 IN 1 D
     Route: 061
     Dates: start: 2009, end: 20131111
  2. DIPROBASE [Suspect]
     Indication: PRODUCT USED FOR UNKNOWN INDICATION
  3. DIPROBASE [Suspect]

REACTIONS (4)
  - Psoriasis [None]
  - Therapeutic response decreased [None]
  - Tachyphylaxis [None]
  - Rebound psoriasis [None]
